FAERS Safety Report 8078587-X (Version None)
Quarter: 2012Q1

REPORT INFORMATION
  Report Type: 
  Country: None (occurrence: None)
  Receive Date: 20120124
  Receipt Date: 20120109
  Transmission Date: 20120608
  Serious: Yes (Other)
  Sender: FDA-Public Use
  Company Number: 2012MA000554

PATIENT
  Age: 30 Year
  Sex: Female

DRUGS (3)
  1. BETAMETHASONE VALERATE [Suspect]
     Indication: PREMATURE LABOUR
     Dosage: 24 MG, IM
     Route: 030
  2. NIFEDIPINE [Suspect]
     Indication: PREMATURE LABOUR
     Dosage: PO
     Route: 048
  3. BETAMETHASONE VALERATE [Suspect]

REACTIONS (3)
  - DELIRIUM [None]
  - PSYCHOTIC DISORDER [None]
  - MATERNAL EXPOSURE DURING PREGNANCY [None]
